FAERS Safety Report 8560972-0 (Version None)
Quarter: 2012Q3

REPORT INFORMATION
  Report Type: 
  Country: None (occurrence: None)
  Receive Date: 20120727
  Receipt Date: 20120727
  Transmission Date: 20120928
  Serious: Yes (Hospitalization)
  Sender: FDA-Public Use
  Company Number: None

PATIENT
  Age: 79 Year
  Sex: Female

DRUGS (9)
  1. MIDODRINE HYDROCHLORIDE [Concomitant]
  2. COUMADIN [Suspect]
     Indication: ATRIAL FIBRILLATION
     Dosage: 5MG DAILY PO CHRONIC
     Route: 048
  3. LOVAZA [Concomitant]
  4. NORCO [Concomitant]
  5. CORGARD [Concomitant]
  6. ZOCOR [Concomitant]
  7. THYROID TAB [Concomitant]
  8. RALOXIFENE HYDROCHLORIDE [Concomitant]
  9. MUCINEX [Concomitant]

REACTIONS (2)
  - COMPUTERISED TOMOGRAM ABNORMAL [None]
  - HAEMOPTYSIS [None]
